FAERS Safety Report 5759007-4 (Version None)
Quarter: 2008Q2

REPORT INFORMATION
  Report Type: 
  Country: None (occurrence: None)
  Receive Date: 20080604
  Receipt Date: 20080527
  Transmission Date: 20081010
  Serious: Yes (Other)
  Sender: FDA-Public Use
  Company Number: GB-PFIZER INC-2008045487

PATIENT
  Age: 21 Year
  Sex: Female
  Weight: 52 kg

DRUGS (1)
  1. CELECOXIB [Suspect]
     Indication: TEMPOROMANDIBULAR JOINT SYNDROME
     Route: 048
     Dates: start: 20080507, end: 20080507

REACTIONS (4)
  - ABDOMINAL PAIN LOWER [None]
  - CHEST DISCOMFORT [None]
  - PHARYNGEAL OEDEMA [None]
  - RASH [None]
